FAERS Safety Report 10444745 (Version 4)
Quarter: 2016Q3

REPORT INFORMATION
  Report Type: Spontaneous
  Country: US (occurrence: US)
  Receive Date: 20140910
  Receipt Date: 20160823
  Transmission Date: 20161109
  Serious: Yes (Other)
  Sender: FDA-Public Use
  Company Number: US-BAYER-2014-131640

PATIENT
  Age: 31 Year
  Sex: Female
  Weight: 77.98 kg

DRUGS (16)
  1. WELLBUTRIN [Concomitant]
     Active Substance: BUPROPION HYDROCHLORIDE
     Indication: SCHIZOPHRENIA
  2. IRON [Concomitant]
     Active Substance: IRON
  3. WELLBUTRIN [Concomitant]
     Active Substance: BUPROPION HYDROCHLORIDE
     Indication: BIPOLAR DISORDER
  4. ABILIFY [Concomitant]
     Active Substance: ARIPIPRAZOLE
     Indication: SCHIZOPHRENIA
  5. HYDROXYZINE [Concomitant]
     Active Substance: HYDROXYZINE\HYDROXYZINE HYDROCHLORIDE
     Indication: BIPOLAR DISORDER
  6. MIRENA [Suspect]
     Active Substance: LEVONORGESTREL
     Indication: CONTRACEPTION
     Dosage: 20 MCG/24HR, CONT
     Route: 015
     Dates: start: 20120125, end: 20130930
  7. WELLBUTRIN [Concomitant]
     Active Substance: BUPROPION HYDROCHLORIDE
     Indication: MENTAL IMPAIRMENT
     Dosage: UNK
     Dates: start: 1994
  8. ABILIFY [Concomitant]
     Active Substance: ARIPIPRAZOLE
     Indication: MENTAL IMPAIRMENT
     Dosage: UNK
     Dates: start: 1994
  9. ABILIFY [Concomitant]
     Active Substance: ARIPIPRAZOLE
     Indication: BIPOLAR DISORDER
  10. HYDROXYZINE [Concomitant]
     Active Substance: HYDROXYZINE\HYDROXYZINE HYDROCHLORIDE
     Indication: SCHIZOPHRENIA
     Dosage: UNK
     Dates: start: 1994
  11. HYDROXYZINE [Concomitant]
     Active Substance: HYDROXYZINE\HYDROXYZINE HYDROCHLORIDE
     Indication: MENTAL IMPAIRMENT
     Dosage: UNK
     Dates: start: 1994
  12. NEURONTIN [Concomitant]
     Active Substance: GABAPENTIN
  13. METHADONE [Concomitant]
     Active Substance: METHADONE HYDROCHLORIDE
  14. ACETAMINOPHEN. [Concomitant]
     Active Substance: ACETAMINOPHEN
  15. IBUPROFEN. [Concomitant]
     Active Substance: IBUPROFEN
  16. MOTRIN [Concomitant]
     Active Substance: IBUPROFEN

REACTIONS (15)
  - Peritoneal fibrosis [None]
  - Device difficult to use [None]
  - Pain [None]
  - Abdominal pain [None]
  - Abortion spontaneous [None]
  - Injury [None]
  - Anxiety [None]
  - Flank pain [None]
  - Mental impairment [None]
  - Maternal exposure before pregnancy [None]
  - Device dislocation [None]
  - Depression [None]
  - Device dislocation [None]
  - Device issue [None]
  - Emotional distress [None]

NARRATIVE: CASE EVENT DATE: 201204
